FAERS Safety Report 16070991 (Version 1)
Quarter: 2019Q1

REPORT INFORMATION
  Report Type: Spontaneous
  Country: US (occurrence: US)
  Receive Date: 20190314
  Receipt Date: 20190314
  Transmission Date: 20190418
  Serious: No
  Sender: FDA-Public Use
  Company Number: US-BAYER-2019-051655

PATIENT

DRUGS (3)
  1. MYCELEX [Concomitant]
     Active Substance: CLOTRIMAZOLE
  2. CLARITIN [Suspect]
     Active Substance: LORATADINE
  3. SPIRONOLACTONE. [Concomitant]
     Active Substance: SPIRONOLACTONE

REACTIONS (1)
  - Drug hypersensitivity [Unknown]
